FAERS Safety Report 5473449-6 (Version None)
Quarter: 2007Q4

REPORT INFORMATION
  Report Type: 
  Country: None (occurrence: None)
  Receive Date: 20071001
  Receipt Date: 20070917
  Transmission Date: 20080405
  Serious: Yes (Hospitalization)
  Sender: FDA-Public Use
  Company Number: GR-ELI_LILLY_AND_COMPANY-GR200709003196

PATIENT
  Age: 70 Year
  Sex: Female

DRUGS (4)
  1. DULOXETINE HYDROCHLORIDE [Suspect]
     Indication: ANXIETY
     Dosage: 60 MG, DAILY (1/D)
     Route: 048
     Dates: start: 20070914, end: 20070915
  2. DUMYROX [Concomitant]
     Indication: ANXIETY
     Dosage: 200 MG, DAILY (1/D)
     Route: 048
     Dates: end: 20070913
  3. SEROQUEL [Concomitant]
     Indication: ANXIETY
     Dosage: UNK, UNKNOWN
     Route: 048
     Dates: end: 20070913
  4. TAVOR [Concomitant]
     Indication: ANXIETY
     Dosage: UNK, UNKNOWN
     Route: 065

REACTIONS (1)
  - GASTRIC HAEMORRHAGE [None]
